FAERS Safety Report 4485174-9 (Version None)
Quarter: 2004Q4

REPORT INFORMATION
  Report Type: 
  Country: None (occurrence: None)
  Receive Date: 20041026
  Receipt Date: 20030206
  Transmission Date: 20050328
  Serious: No
  Sender: FDA-Public Use
  Company Number: US-BRISTOL-MYERS SQUIBB COMPANY-12498804

PATIENT
  Age: 78 Year
  Sex: Female

DRUGS (2)
  1. GLUCOPHAGE XR [Suspect]
     Indication: HYPERGLYCAEMIA
     Route: 048
  2. ASPIRIN [Concomitant]

REACTIONS (2)
  - DIARRHOEA [None]
  - POLLAKIURIA [None]
